FAERS Safety Report 6943953-X (Version None)
Quarter: 2010Q3

REPORT INFORMATION
  Report Type: 
  Country: None (occurrence: None)
  Receive Date: 20100826
  Receipt Date: 20100727
  Transmission Date: 20110219
  Serious: Yes (Other)
  Sender: FDA-Public Use
  Company Number: PHEH2007US05535

PATIENT
  Sex: Male

DRUGS (7)
  1. AREDIA [Suspect]
  2. ZOMETA [Suspect]
  3. FOSAMAX [Suspect]
  4. TAXOTERE [Concomitant]
  5. PREDNISONE [Concomitant]
  6. LUPRON [Concomitant]
  7. CASODEX [Concomitant]

REACTIONS (14)
  - ANXIETY [None]
  - BLOOD FOLATE INCREASED [None]
  - BLOOD TESTOSTERONE DECREASED [None]
  - BONE DISORDER [None]
  - HAEMATURIA [None]
  - INFECTION [None]
  - INJURY [None]
  - LOOSE TOOTH [None]
  - OBSTRUCTIVE UROPATHY [None]
  - OSTEONECROSIS OF JAW [None]
  - PAIN [None]
  - SPINAL OSTEOARTHRITIS [None]
  - TOOTH EXTRACTION [None]
  - VITAMIN B12 INCREASED [None]
